FAERS Safety Report 4967426-9 (Version None)
Quarter: 2006Q2

REPORT INFORMATION
  Report Type: 
  Country: None (occurrence: None)
  Receive Date: 20060404
  Receipt Date: 20060323
  Transmission Date: 20061013
  Serious: Yes (Other)
  Sender: FDA-Public Use
  Company Number: 2006020890

PATIENT
  Sex: Male
  Weight: 77.1115 kg

DRUGS (4)
  1. ROGAINE [Suspect]
     Indication: ALOPECIA
     Dosage: UP TO THE LINE ON THE DROPPLER
  2. MULTIVITAMINS (ASCORBIC ACID, ERGOCALCIFEROL, FOLIC ACID, NICOTINAMIDE [Concomitant]
  3. UBIDECARENONE (UBIDECARENONE) [Concomitant]
  4. MYRTILLUS (MYRTILLUS) [Concomitant]

REACTIONS (1)
  - MUSCULAR WEAKNESS [None]
